FAERS Safety Report 7346781-9 (Version None)
Quarter: 2011Q1

REPORT INFORMATION
  Report Type: 
  Country: None (occurrence: None)
  Receive Date: 20110302
  Receipt Date: 20081201
  Transmission Date: 20110831
  Serious: Yes (Other)
  Sender: FDA-Public Use
  Company Number: UK-2008-00446

PATIENT
  Age: 64 Year
  Sex: Male
  Weight: 87 kg

DRUGS (4)
  1. CALCIPOTRIOL [Concomitant]
  2. SIMVASTATIN [Suspect]
     Indication: HYPERCHOLESTEROLAEMIA
     Dosage: 1 IN 1 D, ORAL
     Route: 048
     Dates: start: 20070327, end: 20081112
  3. ASPIRIN [Concomitant]
  4. GLYCERYL TRINITRATE (NITROLINGUAL) [Concomitant]

REACTIONS (3)
  - PSORIASIS [None]
  - MYALGIA [None]
  - RASH [None]
